FAERS Safety Report 25919761 (Version 1)
Quarter: 2025Q4

REPORT INFORMATION
  Report Type: Spontaneous
  Country: US (occurrence: US)
  Receive Date: 20251014
  Receipt Date: 20251014
  Transmission Date: 20260117
  Serious: Yes (Other)
  Sender: BOTANIX PHARMACEUTICALS
  Company Number: US-BOTANIX PHARMACEUTICALS-2025BOT00294

PATIENT
  Age: 18 Year
  Sex: Male
  Weight: 95.238 kg

DRUGS (3)
  1. SOFDRA [Suspect]
     Active Substance: SOFPIRONIUM BROMIDE
     Indication: Hyperhidrosis
     Dosage: APPLIED TO UNDERARMS, USED ^INCONSISTENTLY^
     Route: 061
     Dates: start: 2025, end: 202508
  2. SOFDRA [Suspect]
     Active Substance: SOFPIRONIUM BROMIDE
     Dosage: APPLIED TO UNDERARMS, ONCE DAILY AT NIGHT
     Route: 061
     Dates: start: 202508, end: 20250908
  3. ALLEGRA [Concomitant]
     Active Substance: FEXOFENADINE HYDROCHLORIDE

REACTIONS (4)
  - Urinary retention [Not Recovered/Not Resolved]
  - Micturition urgency [Not Recovered/Not Resolved]
  - Vision blurred [Not Recovered/Not Resolved]
  - Application site rash [Not Recovered/Not Resolved]

NARRATIVE: CASE EVENT DATE: 20250909
